FAERS Safety Report 23538511 (Version 2)
Quarter: 2024Q2

REPORT INFORMATION
  Report Type: Spontaneous
  Country: US (occurrence: US)
  Receive Date: 20240219
  Receipt Date: 20240522
  Transmission Date: 20240715
  Serious: No
  Sender: FDA-Public Use
  Company Number: US-PFIZER INC-PV202400023150

PATIENT
  Age: 45 Year
  Sex: Female

DRUGS (1)
  1. XELJANZ XR [Suspect]
     Active Substance: TOFACITINIB CITRATE
     Dosage: UNK

REACTIONS (6)
  - Fatigue [Unknown]
  - Hypoaesthesia [Unknown]
  - Chloasma [Unknown]
  - Condition aggravated [Unknown]
  - Arthritis [Unknown]
  - Musculoskeletal stiffness [Unknown]
